FAERS Safety Report 17811407 (Version 2)
Quarter: 2020Q2

REPORT INFORMATION
  Report Type: Spontaneous
  Country: US (occurrence: US)
  Receive Date: 20200521
  Receipt Date: 20200616
  Transmission Date: 20200714
  Serious: No
  Sender: FDA-Public Use
  Company Number: US-PFIZER INC-2020201203

PATIENT
  Age: 58 Year
  Sex: Female

DRUGS (1)
  1. XELJANZ XR [Suspect]
     Active Substance: TOFACITINIB CITRATE
     Dosage: 11 MG
     Dates: start: 202004

REACTIONS (5)
  - Inflammation [Unknown]
  - Pain [Unknown]
  - Red blood cell sedimentation rate [Unknown]
  - Sleep apnoea syndrome [Unknown]
  - Hypotension [Unknown]
